FAERS Safety Report 9908012 (Version 2)
Quarter: 2014Q2

REPORT INFORMATION
  Report Type: Spontaneous
  Country: CA (occurrence: CA)
  Receive Date: 20140219
  Receipt Date: 20140422
  Transmission Date: 20141212
  Serious: Yes (Other)
  Sender: FDA-Public Use
  Company Number: CA-AMGEN-CANSP2014011164

PATIENT
  Age: 58 Year
  Sex: Female
  Weight: 61.22 kg

DRUGS (9)
  1. ENBREL [Suspect]
     Indication: RHEUMATOID ARTHRITIS
     Dosage: 50 MG, QWK
     Route: 058
     Dates: start: 201109
  2. METHOTREXATE [Concomitant]
     Dosage: 2.5 MG, QWK
  3. METHOTREXATE [Concomitant]
     Dosage: 20 MG, QWK
  4. HYDROXYCHLOROQUINE [Concomitant]
     Dosage: 200 MG, QD
  5. EURO FOLIC [Concomitant]
     Dosage: UNK UNK, 2 TIMES/WK
  6. FOLIC [Concomitant]
     Dosage: 5 MG, UNK
     Route: 048
  7. BIOCAL D CR [Concomitant]
     Dosage: UNK UNK, 500/1000
     Route: 048
  8. PLAQUENIL                          /00072602/ [Concomitant]
     Dosage: 200 MG, BID
     Route: 048
  9. VITAMIN D                          /00107901/ [Concomitant]
     Dosage: UNK

REACTIONS (4)
  - Angina pectoris [Recovered/Resolved]
  - Hypoaesthesia oral [Recovered/Resolved]
  - Influenza [Recovered/Resolved]
  - Chest pain [Recovered/Resolved]
